FAERS Safety Report 16071337 (Version 1)
Quarter: 2019Q2

REPORT INFORMATION
  Report Type: Spontaneous
  Country: US (occurrence: US)
  Receive Date: 20190314
  Receipt Date: 20190314
  Transmission Date: 20190711
  Serious: Yes (Hospitalization)
  Sender: FDA-Public Use
  Company Number: None

PATIENT
  Sex: Female

DRUGS (7)
  1. HYROCO/APAP 10 - 325 MG [Concomitant]
     Dates: start: 20190119
  2. TIZANIDINE 4 MG [Concomitant]
     Active Substance: TIZANIDINE
     Dates: start: 20190114
  3. HUMIRA [Suspect]
     Active Substance: ADALIMUMAB
     Indication: ANKYLOSING SPONDYLITIS
     Dosage: ?          OTHER FREQUENCY:EVERY 2 WEEKS;?
     Route: 058
  4. DULOXETINE 60 MG [Concomitant]
     Active Substance: DULOXETINE
     Dates: start: 20180921
  5. ATORVASTATIN 10 MG [Concomitant]
     Active Substance: ATORVASTATIN
     Dates: start: 20181106
  6. METOPROLOL ER 25 MG [Concomitant]
     Dates: start: 20181106
  7. MORPHINE ER 15 MG [Concomitant]
     Dates: start: 20190119

REACTIONS (1)
  - Malaise [None]
